FAERS Safety Report 4501268-3 (Version None)
Quarter: 2004Q4

REPORT INFORMATION
  Report Type: 
  Country: None (occurrence: None)
  Receive Date: 20041110
  Receipt Date: 20041101
  Transmission Date: 20050328
  Serious: Yes (Life-Threatening, Hospitalization)
  Sender: FDA-Public Use
  Company Number: 2004242158IS

PATIENT
  Sex: Male

DRUGS (4)
  1. SULFASALAZINE [Suspect]
     Indication: PSORIASIS
     Dosage: 500 MG, QID, ORAL
     Route: 048
     Dates: start: 20020326, end: 20020511
  2. SOTALOL HCL [Concomitant]
  3. AMLODIPINE [Concomitant]
  4. LOSEC [Concomitant]

REACTIONS (6)
  - ALOPECIA [None]
  - FEELING ABNORMAL [None]
  - INFLUENZA LIKE ILLNESS [None]
  - LETHARGY [None]
  - URINARY RETENTION [None]
  - WHITE BLOOD CELL COUNT DECREASED [None]
